FAERS Safety Report 6492369-1 (Version None)
Quarter: 2009Q4

REPORT INFORMATION
  Report Type: 
  Country: None (occurrence: None)
  Receive Date: 20091214
  Receipt Date: 20091204
  Transmission Date: 20100525
  Serious: Yes (Hospitalization)
  Sender: FDA-Public Use
  Company Number: TH-ASTRAZENECA-2009SE22993

PATIENT
  Age: 39 Year
  Sex: Male

DRUGS (1)
  1. MARCAINE SPINAL ISOBARIC [Suspect]
     Indication: SPINAL ANAESTHESIA
     Route: 037
     Dates: start: 20091002, end: 20091002

REACTIONS (5)
  - DELAYED RECOVERY FROM ANAESTHESIA [None]
  - NERVE INJURY [None]
  - NEURALGIA [None]
  - NEURITIS [None]
  - RADICULOPATHY [None]
